FAERS Safety Report 4641900-7 (Version None)
Quarter: 2005Q2

REPORT INFORMATION
  Report Type: 
  Country: None (occurrence: None)
  Receive Date: 20050421
  Receipt Date: 20050411
  Transmission Date: 20051028
  Serious: Yes (Hospitalization)
  Sender: FDA-Public Use
  Company Number: 212363

PATIENT
  Age: 70 Year
  Sex: Female
  Weight: 94 kg

DRUGS (8)
  1. AVASTIN [Suspect]
     Indication: BREAST CANCER METASTATIC
     Dosage: 5 MG/KG, Q2W, INTRAVENOUS
     Route: 042
     Dates: start: 20031016, end: 20050120
  2. HERCEPTIN (TRASTUZUMAB) PWD + SOLVENT, INFUSION SOLN, 440MG [Suspect]
     Indication: BREAST CANCER METASTATIC
     Dosage: 1/WEEK, INTRAVENOUS
     Route: 042
     Dates: start: 20031009, end: 20050127
  3. SINGULAIR [Concomitant]
  4. ADVAIR (SALMETEROL XINAFOATE, FLUTICASONE PROPIONATE) [Concomitant]
  5. COMBIVENT (ALBUTEROL SULFATE, ALBUTEROL, IPRATROPIUM BROMIDE) [Concomitant]
  6. LOTENSIN [Concomitant]
  7. ALEVE [Concomitant]
  8. HYDROCHLOROTHIAZIDE [Concomitant]

REACTIONS (7)
  - ARTHROPOD BITE [None]
  - CELLULITIS [None]
  - CHRONIC OBSTRUCTIVE AIRWAYS DISEASE EXACERBATED [None]
  - PNEUMONIA [None]
  - RASH PUSTULAR [None]
  - SPUTUM DISCOLOURED [None]
  - STAPHYLOCOCCAL ABSCESS [None]
